FAERS Safety Report 25592494 (Version 1)
Quarter: 2025Q3

REPORT INFORMATION
  Report Type: Spontaneous
  Country: US (occurrence: US)
  Receive Date: 20250722
  Receipt Date: 20250722
  Transmission Date: 20251020
  Serious: No
  Sender: GALDERMA
  Company Number: US-GALDERMA-US2024013657

PATIENT

DRUGS (1)
  1. METRONIDAZOLE [Suspect]
     Active Substance: METRONIDAZOLE
     Indication: Product used for unknown indication
     Route: 061

REACTIONS (6)
  - Dermatitis acneiform [Unknown]
  - Dry skin [Unknown]
  - Erythema [Unknown]
  - Telangiectasia [Unknown]
  - Eczema [Unknown]
  - Nodule [Unknown]
